FAERS Safety Report 4354183-2 (Version None)
Quarter: 2004Q2

REPORT INFORMATION
  Report Type: 
  Country: None (occurrence: None)
  Receive Date: 20040503
  Receipt Date: 20040420
  Transmission Date: 20050107
  Serious: No
  Sender: FDA-Public Use
  Company Number: 2004-115492-NL

PATIENT
  Age: 68 Year
  Sex: Female

DRUGS (3)
  1. MIRTAZAPINE [Suspect]
     Dosage: 15 MG QD; ORAL
     Route: 048
  2. RAMIPRIL [Concomitant]
  3. CIMETIDINE HCL [Concomitant]

REACTIONS (5)
  - ATAXIA [None]
  - CARDIAC FAILURE CONGESTIVE [None]
  - CONFUSIONAL STATE [None]
  - DYSPNOEA [None]
  - OEDEMA PERIPHERAL [None]
